FAERS Safety Report 19734155 (Version 1)
Quarter: 2021Q3

REPORT INFORMATION
  Report Type: Spontaneous
  Country: IN (occurrence: IN)
  Receive Date: 20210824
  Receipt Date: 20210824
  Transmission Date: 20211014
  Serious: Yes (Hospitalization, Other)
  Sender: FDA-Public Use
  Company Number: IN-CIPLA (EU) LIMITED-2021IN05689

PATIENT

DRUGS (2)
  1. GEFITINIB. [Suspect]
     Active Substance: GEFITINIB
     Indication: LUNG ADENOCARCINOMA STAGE IV
     Dosage: 250 MG, PER DAY
     Route: 065
     Dates: start: 201909
  2. CAPMATINIB [Suspect]
     Active Substance: CAPMATINIB
     Indication: LUNG ADENOCARCINOMA STAGE IV
     Dosage: 400 MILLIGRAM, BID
     Route: 065
     Dates: start: 2019

REACTIONS (5)
  - Dermatitis acneiform [Unknown]
  - Lung adenocarcinoma [Recovering/Resolving]
  - Paronychia [Unknown]
  - Drug resistance [Unknown]
  - Malignant neoplasm progression [Recovering/Resolving]

NARRATIVE: CASE EVENT DATE: 201910
